FAERS Safety Report 5401317-4 (Version None)
Quarter: 2007Q3

REPORT INFORMATION
  Report Type: 
  Country: None (occurrence: None)
  Receive Date: 20070725
  Receipt Date: 20070718
  Transmission Date: 20080115
  Serious: Yes (Other)
  Sender: FDA-Public Use
  Company Number: CHPA2007US07819

PATIENT
  Age: 83 Year
  Sex: Female
  Weight: 61.2 kg

DRUGS (1)
  1. EXCEDRIN (MIGRAINE) [Suspect]
     Indication: HEADACHE
     Dosage: 2 DF, Q6H, ORAL
     Route: 048
     Dates: start: 20070106

REACTIONS (1)
  - DRUG DEPENDENCE [None]
